FAERS Safety Report 18099985 (Version 1)
Quarter: 2020Q3

REPORT INFORMATION
  Report Type: Report from Study
  Country: CA (occurrence: CA)
  Receive Date: 20200731
  Receipt Date: 20200731
  Transmission Date: 20201103
  Serious: Yes (Other)
  Sender: FDA-Public Use
  Company Number: CA-JNJFOC-20190439406

PATIENT
  Age: 65 Year
  Sex: Female
  Weight: 72.57 kg

DRUGS (2)
  1. REMICADE [Suspect]
     Active Substance: INFLIXIMAB
     Indication: COLITIS ULCERATIVE
     Route: 042
     Dates: start: 20140312
  2. REMICADE [Suspect]
     Active Substance: INFLIXIMAB
     Indication: COLITIS MICROSCOPIC
     Route: 042

REACTIONS (5)
  - Colitis ulcerative [Unknown]
  - Influenza [Recovered/Resolved]
  - General physical health deterioration [Unknown]
  - Product use issue [Unknown]
  - Off label use [Unknown]

NARRATIVE: CASE EVENT DATE: 20190418
